FAERS Safety Report 13424804 (Version 1)
Quarter: 2017Q2

REPORT INFORMATION
  Report Type: Report from Study
  Country: US (occurrence: US)
  Receive Date: 20170410
  Receipt Date: 20170410
  Transmission Date: 20170830
  Serious: Yes (Hospitalization)
  Sender: FDA-Public Use
  Company Number: US-ACTELION-A-US2014-102557

PATIENT
  Age: 79 Year
  Sex: Female
  Weight: 75.74 kg

DRUGS (5)
  1. TYVASO [Suspect]
     Active Substance: TREPROSTINIL
     Indication: PRODUCT USED FOR UNKNOWN INDICATION
     Route: 065
  2. COUMADIN [Concomitant]
     Active Substance: WARFARIN SODIUM
  3. RIOCIGUAT [Concomitant]
     Active Substance: RIOCIGUAT
  4. OPSUMIT [Suspect]
     Active Substance: MACITENTAN
     Indication: PULMONARY ARTERIAL HYPERTENSION
     Dosage: 10 MG, QD
     Route: 048
     Dates: start: 20140623
  5. OPSUMIT [Suspect]
     Active Substance: MACITENTAN
     Dosage: UNK
     Route: 048

REACTIONS (15)
  - Fluid retention [Unknown]
  - Oxygen consumption decreased [Unknown]
  - Cardiac operation [Unknown]
  - Swelling [Unknown]
  - Hypopnoea [Unknown]
  - Malaise [Unknown]
  - Palpitations [Unknown]
  - Syncope [Unknown]
  - Hypotension [Unknown]
  - Cough [Unknown]
  - Loss of personal independence in daily activities [Unknown]
  - Unevaluable event [Unknown]
  - Blood pressure decreased [Unknown]
  - Dizziness [Unknown]
  - Cardiac failure congestive [Unknown]

NARRATIVE: CASE EVENT DATE: 20160830
